FAERS Safety Report 24877945 (Version 1)
Quarter: 2025Q1

REPORT INFORMATION
  Report Type: Spontaneous
  Country: US (occurrence: US)
  Receive Date: 20250123
  Receipt Date: 20250123
  Transmission Date: 20250408
  Serious: Yes (Other)
  Sender: RANBAXY
  Company Number: US-SUN PHARMACEUTICAL INDUSTRIES LTD-2025R1-489977

PATIENT
  Age: 57 Year
  Sex: Male

DRUGS (2)
  1. TADALAFIL [Interacting]
     Active Substance: TADALAFIL
     Indication: Pulmonary arterial hypertension
     Route: 065
  2. AMYL NITRATE [Suspect]
     Active Substance: AMYL NITRATE
     Indication: Drug abuse

REACTIONS (2)
  - Syncope [Unknown]
  - Drug interaction [Unknown]
